FAERS Safety Report 5556932-4 (Version None)
Quarter: 2007Q4

REPORT INFORMATION
  Report Type: 
  Country: None (occurrence: None)
  Receive Date: 20071211
  Receipt Date: 20071126
  Transmission Date: 20080405
  Serious: Yes (Other)
  Sender: FDA-Public Use
  Company Number: US021374

PATIENT
  Age: 38 Year
  Sex: Female

DRUGS (8)
  1. TRISENOX [Suspect]
     Indication: ACUTE PROMYELOCYTIC LEUKAEMIA
     Dosage: 8.55 MG QD; INTRAVENOUS DRIP
     Route: 041
     Dates: start: 20070905, end: 20070921
  2. GLYCYRRHIZIN/GLYCINE/CYSTEINE [Concomitant]
  3. MAGNESIUM REPLACEMENT [Concomitant]
  4. POTASSIUM REPLACEMENT [Concomitant]
  5. HYDROCORTISONE SODIUM SUCCINATE [Concomitant]
  6. PREDNISOLONE [Concomitant]
  7. SPIRONOLACTONE [Concomitant]
  8. FUROSEMIDE [Concomitant]

REACTIONS (9)
  - ALANINE AMINOTRANSFERASE INCREASED [None]
  - ASPARTATE AMINOTRANSFERASE DECREASED [None]
  - BLOOD MAGNESIUM DECREASED [None]
  - BLOOD POTASSIUM DECREASED [None]
  - ELECTROCARDIOGRAM QT PROLONGED [None]
  - GAMMA-GLUTAMYLTRANSFERASE INCREASED [None]
  - HEPATIC FUNCTION ABNORMAL [None]
  - OEDEMA [None]
  - RASH [None]
